FAERS Safety Report 10213106 (Version 3)
Quarter: 2014Q4

REPORT INFORMATION
  Report Type: Spontaneous
  Country: DE (occurrence: DE)
  Receive Date: 20140603
  Receipt Date: 20141128
  Transmission Date: 20150528
  Serious: Yes (Hospitalization, Other)
  Sender: FDA-Public Use
  Company Number: DE-ROCHE-1411826

PATIENT
  Age: 63 Year
  Sex: Female

DRUGS (1)
  1. HERCEPTIN [Suspect]
     Active Substance: TRASTUZUMAB
     Indication: BREAST CANCER METASTATIC
     Route: 065

REACTIONS (7)
  - Atypical pneumonia [Not Recovered/Not Resolved]
  - White blood cell count decreased [Unknown]
  - Cardiac disorder [Unknown]
  - Herpes zoster [Not Recovered/Not Resolved]
  - Breast cancer recurrent [Unknown]
  - Fluid retention [Unknown]
  - Oedema [Not Recovered/Not Resolved]
